FAERS Safety Report 13677079 (Version 1)
Quarter: 2017Q2

REPORT INFORMATION
  Report Type: Spontaneous
  Country: US (occurrence: US)
  Receive Date: 20170622
  Receipt Date: 20170622
  Transmission Date: 20170830
  Serious: Yes (Life-Threatening)
  Sender: FDA-Public Use
  Company Number: PHHY2017US091499

PATIENT
  Age: 17 Year
  Sex: Female

DRUGS (2)
  1. DEFEROXAMINE [Suspect]
     Active Substance: DEFEROXAMINE\DEFEROXAMINE MESYLATE
     Indication: IRON OVERLOAD
     Dosage: 15 MG/KG, QH
     Route: 065
  2. N-ACETYLCYSTEINE [Concomitant]
     Active Substance: ACETYLCYSTEINE
     Indication: IRON OVERLOAD
     Dosage: UNK
     Route: 065

REACTIONS (9)
  - Hepatic encephalopathy [Recovered/Resolved]
  - Acute hepatic failure [Recovered/Resolved]
  - Pyrexia [Recovered/Resolved]
  - Cholestasis [Recovered/Resolved]
  - Therapeutic response decreased [Unknown]
  - Coagulopathy [Recovered/Resolved]
  - Lactic acidosis [Recovered/Resolved]
  - Liver injury [Recovered/Resolved]
  - Hepatic necrosis [Recovered/Resolved]
